FAERS Safety Report 15241598 (Version 1)
Quarter: 2018Q3

REPORT INFORMATION
  Report Type: Spontaneous
  Country: FR (occurrence: FR)
  Receive Date: 20180805
  Receipt Date: 20180805
  Transmission Date: 20181010
  Serious: Yes (Hospitalization)
  Sender: FDA-Public Use
  Company Number: PHHY2018FR061695

PATIENT
  Age: 60 Year
  Sex: Male
  Weight: 93 kg

DRUGS (7)
  1. COSENTYX [Suspect]
     Active Substance: SECUKINUMAB
     Indication: SPONDYLITIS
     Dosage: 300 MG, QMO
     Route: 058
     Dates: start: 201612, end: 20180113
  2. ENBREL [Concomitant]
     Active Substance: ETANERCEPT
     Indication: SPONDYLITIS
     Dosage: 1 DF, UNK
     Route: 058
  3. REMICADE [Concomitant]
     Active Substance: INFLIXIMAB
     Indication: SPONDYLITIS
     Dosage: UNK
     Route: 042
  4. SIMPONI [Concomitant]
     Active Substance: GOLIMUMAB
     Indication: SPONDYLITIS
     Dosage: 1 DF, UNK (DOUBLE DOSE)
     Route: 058
  5. HUMIRA [Concomitant]
     Active Substance: ADALIMUMAB
     Indication: SPONDYLITIS
     Dosage: 1 DF, UNK
     Route: 058
  6. METHOTREXATE. [Concomitant]
     Active Substance: METHOTREXATE
     Indication: SPONDYLITIS
     Dosage: UNK
     Route: 048
  7. CIMZIA [Concomitant]
     Active Substance: CERTOLIZUMAB PEGOL
     Indication: SPONDYLITIS
     Dosage: 1 DF, UNK
     Route: 058

REACTIONS (1)
  - Bronchial carcinoma [Recovered/Resolved]

NARRATIVE: CASE EVENT DATE: 201801
